FAERS Safety Report 16017373 (Version 1)
Quarter: 2019Q1

REPORT INFORMATION
  Report Type: Spontaneous
  Country: IT (occurrence: IT)
  Receive Date: 20190228
  Receipt Date: 20190228
  Transmission Date: 20190418
  Serious: Yes (Hospitalization)
  Sender: FDA-Public Use
  Company Number: IT-SA-2019SA051624

PATIENT
  Age: 74 Year
  Sex: Male

DRUGS (8)
  1. AMLODIPINE MALEATE [Concomitant]
     Active Substance: AMLODIPINE MALEATE
     Dosage: UNKNOWN
     Route: 065
  2. DOMPERIDONE [Concomitant]
     Active Substance: DOMPERIDONE
     Dosage: UNKNOWN
     Route: 065
  3. SODIUM HYDROGEN CARBONATE [Concomitant]
     Active Substance: SODIUM BICARBONATE
     Dosage: 1000 MG, UNK
     Route: 048
  4. LYSINE ASPIRIN [Concomitant]
     Active Substance: ASPIRIN DL-LYSINE
     Dosage: UNKNOWN
     Route: 065
  5. MOXONIDINE [Concomitant]
     Active Substance: MOXONIDINE
     Dosage: UNKNOWN
     Route: 048
  6. INSULIN LISPRO [Suspect]
     Active Substance: INSULIN LISPRO
     Indication: TYPE 2 DIABETES MELLITUS
     Dosage: 30 DF, QD
     Route: 058
     Dates: start: 20170824, end: 20181030
  7. ATORVASTATIN CALCIUM TRIHYDRATE [Concomitant]
     Active Substance: ATORVASTATIN CALCIUM
     Dosage: UNKNOWN
     Route: 065
  8. INSULIN GLARGINE [Suspect]
     Active Substance: INSULIN GLARGINE
     Indication: TYPE 2 DIABETES MELLITUS
     Dosage: 24 DF, QD
     Route: 058
     Dates: start: 20170824, end: 20181030

REACTIONS (3)
  - Hypoglycaemia [Recovered/Resolved]
  - Facial paralysis [Recovered/Resolved]
  - Dysarthria [Recovered/Resolved]

NARRATIVE: CASE EVENT DATE: 20181030
